FAERS Safety Report 26065694 (Version 2)
Quarter: 2025Q4

REPORT INFORMATION
  Report Type: Spontaneous
  Country: US (occurrence: US)
  Receive Date: 20251119
  Receipt Date: 20251216
  Transmission Date: 20260119
  Serious: Yes (Other)
  Sender: BLUEPRINT MEDICINES
  Company Number: US-Blueprint Medicines Corporation-2025-AER-02487

PATIENT
  Age: 52 Year
  Sex: Female

DRUGS (1)
  1. AYVAKIT [Suspect]
     Active Substance: AVAPRITINIB
     Indication: Myeloproliferative neoplasm
     Route: 065
     Dates: start: 20250905

REACTIONS (7)
  - Lower respiratory tract infection [Unknown]
  - Sinusitis [Unknown]
  - Peripheral coldness [Unknown]
  - Emotional disorder [Unknown]
  - Brain fog [Unknown]
  - Influenza [Unknown]
  - Off label use [Unknown]
